FAERS Safety Report 9708597 (Version 2)
Quarter: 2013Q4

REPORT INFORMATION
  Report Type: Spontaneous
  Country: US (occurrence: US)
  Receive Date: 20131125
  Receipt Date: 20131212
  Transmission Date: 20140711
  Serious: Yes (Other)
  Sender: FDA-Public Use
  Company Number: US-PFIZER INC-2013336012

PATIENT
  Age: 52 Year
  Sex: Female
  Weight: 113 kg

DRUGS (10)
  1. LYRICA [Suspect]
     Indication: FIBROMYALGIA
     Dosage: 150 MG, 2X/DAY
     Dates: start: 2010
  2. OMEPRAZOLE [Concomitant]
     Indication: DYSPEPSIA
     Dosage: UNK
  3. OMEPRAZOLE [Concomitant]
     Indication: GASTROOESOPHAGEAL REFLUX DISEASE
  4. MAXALT [Concomitant]
     Indication: MIGRAINE
     Dosage: UNK
  5. TOPAMAX [Concomitant]
     Indication: MIGRAINE
     Dosage: UNK
  6. TRAMADOL [Concomitant]
     Indication: FIBROMYALGIA
     Dosage: UNK
  7. FLEXERIL [Concomitant]
     Indication: FIBROMYALGIA
     Dosage: UNK
  8. ELAVIL [Concomitant]
     Indication: ARTHROPOD BITE
     Dosage: UNK
  9. ELAVIL [Concomitant]
     Indication: BURNING SENSATION
  10. KLONOPIN [Concomitant]
     Indication: FEELING OF RELAXATION
     Dosage: UNK

REACTIONS (2)
  - Pneumonia [Recovering/Resolving]
  - Pain [Unknown]
